FAERS Safety Report 25720786 (Version 1)
Quarter: 2025Q3

REPORT INFORMATION
  Report Type: Report from Study
  Country: US (occurrence: US)
  Receive Date: 20250825
  Receipt Date: 20250825
  Transmission Date: 20251021
  Serious: No
  Sender: SUNOVION
  Company Number: US-SUMITOMO PHARMA SWITZERLAND GMBH-2025SPA010690

PATIENT
  Age: 82 Year
  Sex: Male

DRUGS (17)
  1. ORGOVYX [Suspect]
     Active Substance: RELUGOLIX
     Indication: Prostate cancer
     Route: 048
  2. ORGOVYX [Suspect]
     Active Substance: RELUGOLIX
     Route: 048
  3. BICALUTAMIDE [Concomitant]
     Active Substance: BICALUTAMIDE
  4. BUPROPION [Concomitant]
     Active Substance: BUPROPION
  5. PREGNENOLONE [Concomitant]
     Active Substance: PREGNENOLONE
  6. ASPIRIN [Concomitant]
     Active Substance: ASPIRIN
  7. Triple omega 3 6 9 [Concomitant]
  8. VITAMIN B6 [Concomitant]
     Active Substance: PYRIDOXINE HYDROCHLORIDE
  9. HERBALS\TURMERIC [Concomitant]
     Active Substance: HERBALS\TURMERIC
  10. COENZYME Q10 [Concomitant]
     Active Substance: DIETARY SUPPLEMENT\UBIDECARENONE
  11. B12 [Concomitant]
  12. VITAMIN D3 [Concomitant]
     Active Substance: CHOLECALCIFEROL
  13. JWH-018 [Concomitant]
     Active Substance: JWH-018
  14. VITAMIN C [Concomitant]
     Active Substance: ASCORBIC ACID
  15. ZINC [Concomitant]
     Active Substance: ZINC
  16. LAMOTRIGINE [Concomitant]
     Active Substance: LAMOTRIGINE
  17. MAGNESIUM GLYCINATE [Concomitant]
     Active Substance: MAGNESIUM GLYCINATE
     Route: 048

REACTIONS (1)
  - Fatigue [Unknown]
